FAERS Safety Report 18480249 (Version 1)
Quarter: 2020Q4

REPORT INFORMATION
  Report Type: Spontaneous
  Country: US (occurrence: US)
  Receive Date: 20201109
  Receipt Date: 20201109
  Transmission Date: 20210114
  Serious: No
  Sender: FDA-Public Use
  Company Number: US-ALXN-A202016282

PATIENT
  Age: 66 Year
  Sex: Female

DRUGS (1)
  1. STRENSIQ [Suspect]
     Active Substance: ASFOTASE ALFA
     Indication: HYPOPHOSPHATASIA
     Dosage: UNK
     Route: 058
     Dates: start: 201611

REACTIONS (2)
  - Muscle atrophy [Not Recovered/Not Resolved]
  - Hyporeflexia [Not Recovered/Not Resolved]

NARRATIVE: CASE EVENT DATE: 2020
